FAERS Safety Report 14203014 (Version 1)
Quarter: 2017Q4

REPORT INFORMATION
  Report Type: Spontaneous
  Country: AU (occurrence: AU)
  Receive Date: 20171120
  Receipt Date: 20171120
  Transmission Date: 20180321
  Serious: Yes (Other)
  Sender: FDA-Public Use
  Company Number: AU-UNICHEM PHARMACEUTICALS (USA) INC-UCM201711-000283

PATIENT
  Age: 11 Year
  Sex: Female

DRUGS (1)
  1. DIVALPROEX SODIUM. [Suspect]
     Active Substance: DIVALPROEX SODIUM

REACTIONS (7)
  - Somnolence [Recovering/Resolving]
  - Memory impairment [Recovering/Resolving]
  - Cerebral atrophy [Recovered/Resolved]
  - Encephalopathy [Recovering/Resolving]
  - Cognitive disorder [Recovering/Resolving]
  - Disturbance in attention [Recovering/Resolving]
  - Toxicity to various agents [Recovering/Resolving]
